FAERS Safety Report 10484692 (Version 3)
Quarter: 2015Q4

REPORT INFORMATION
  Report Type: Spontaneous
  Country: US (occurrence: US)
  Receive Date: 20140930
  Receipt Date: 20151120
  Transmission Date: 20160304
  Serious: Yes (Hospitalization, Other)
  Sender: FDA-Public Use
  Company Number: US-PFIZER INC-2014268439

PATIENT
  Age: 75 Year
  Sex: Female

DRUGS (1)
  1. REVATIO [Suspect]
     Active Substance: SILDENAFIL CITRATE
     Dosage: UNK

REACTIONS (6)
  - Haematochezia [Unknown]
  - Intestinal obstruction [Unknown]
  - Hernia [Unknown]
  - Eye disorder [Not Recovered/Not Resolved]
  - Intestinal perforation [Unknown]
  - Infection [Unknown]
